FAERS Safety Report 25835295 (Version 1)
Quarter: 2025Q3

REPORT INFORMATION
  Report Type: Report from Study
  Country: US (occurrence: US)
  Receive Date: 20250923
  Receipt Date: 20250923
  Transmission Date: 20251021
  Serious: Yes (Other)
  Sender: SUNOVION
  Company Number: US-SMPA-2025SPA012146

PATIENT
  Age: 91 Year
  Sex: Male

DRUGS (12)
  1. ORGOVYX [Suspect]
     Active Substance: RELUGOLIX
     Indication: Prostate cancer
     Route: 048
  2. ACYCLOVIR [Concomitant]
     Active Substance: ACYCLOVIR
  3. ARMOUR THYROID [Concomitant]
     Active Substance: THYROID, PORCINE
  4. ATORVASTATIN CALCIUM [Concomitant]
     Active Substance: ATORVASTATIN CALCIUM
  5. BICALUTAMIDE [Concomitant]
     Active Substance: BICALUTAMIDE
  6. CARVEDILOL [Concomitant]
     Active Substance: CARVEDILOL
  7. CITALOPRAM HYDROBROMIDE [Concomitant]
     Active Substance: CITALOPRAM HYDROBROMIDE
  8. DUTASTERIDE [Concomitant]
     Active Substance: DUTASTERIDE
  9. ELIQUIS [Concomitant]
     Active Substance: APIXABAN
  10. FLONASE [Concomitant]
     Active Substance: FLUTICASONE PROPIONATE
  11. LATANOPROST [Concomitant]
     Active Substance: LATANOPROST
     Route: 047
  12. TAMSULOSIN HYDROCHLORIDE [Concomitant]
     Active Substance: TAMSULOSIN HYDROCHLORIDE

REACTIONS (3)
  - Renal failure [Unknown]
  - Blood urine present [Unknown]
  - Urinary tract infection [Unknown]
